FAERS Safety Report 11045794 (Version 1)
Quarter: 2015Q2

REPORT INFORMATION
  Report Type: Spontaneous
  Country: CH (occurrence: CH)
  Receive Date: 20150417
  Receipt Date: 20150417
  Transmission Date: 20150821
  Serious: Yes (Hospitalization)
  Sender: FDA-Public Use
  Company Number: CH-ASTRAZENECA-2015SE33077

PATIENT
  Age: 85 Year
  Sex: Female

DRUGS (10)
  1. MIRTAZAPIN [Concomitant]
     Active Substance: MIRTAZAPINE
  2. DIAMICRON [Concomitant]
     Active Substance: GLICLAZIDE
  3. ELTROXIN [Concomitant]
     Active Substance: LEVOTHYROXINE
  4. BELOC ZOK [Suspect]
     Active Substance: METOPROLOL SUCCINATE
     Indication: CORONARY ARTERY DISEASE
     Route: 048
     Dates: end: 201503
  5. PANTOPRAZOLE SODIUM. [Concomitant]
     Active Substance: PANTOPRAZOLE SODIUM
  6. TORASEM [Concomitant]
     Active Substance: TORSEMIDE
  7. PARACETAMOL [Concomitant]
     Active Substance: ACETAMINOPHEN
  8. ATORVASTATIN [Concomitant]
     Active Substance: ATORVASTATIN
  9. MARCOUMAR [Concomitant]
     Active Substance: PHENPROCOUMON
  10. ASPIRIN CARDIO [Concomitant]
     Active Substance: ASPIRIN

REACTIONS (3)
  - Fall [Recovered/Resolved]
  - Syncope [Recovered/Resolved]
  - Bradycardia [Recovering/Resolving]

NARRATIVE: CASE EVENT DATE: 20150305
